FAERS Safety Report 8344497 (Version 5)
Quarter: 2012Q4

REPORT INFORMATION
  Report Type: 
  Country: JP (occurrence: JP)
  Receive Date: 20120119
  Receipt Date: 20120906
  Transmission Date: 20130627
  Serious: Yes (Disabling)
  Sender: FDA-Public Use
  Company Number: GB-GILEAD-2011-0048184

PATIENT
  Age: 60 Year
  Sex: Male

DRUGS (5)
  1. HEPSERA [Suspect]
     Indication: HEPATITIS B
     Dosage: 10 mg, QD
     Route: 048
     Dates: start: 20031127, end: 20111204
  2. HEPSERA [Suspect]
     Dosage: 10MG Per day
     Route: 048
     Dates: start: 20031127, end: 20111204
  3. ZEFIX [Concomitant]
     Indication: HEPATITIS B
     Dosage: 100MG Per day
     Route: 048
     Dates: start: 20020520, end: 20111204
  4. FOSAMAC [Concomitant]
     Indication: OSTEOPOROSIS
     Dosage: UNK
     Route: 048
     Dates: start: 20111204
  5. FOSAMAC [Concomitant]
     Route: 048
     Dates: end: 20111204

REACTIONS (4)
  - Arthralgia [Unknown]
  - Fanconi syndrome acquired [Recovering/Resolving]
  - Blood phosphorus decreased [Unknown]
  - Beta 2 microglobulin urine increased [Unknown]
